FAERS Safety Report 6455282-1 (Version None)
Quarter: 2009Q4

REPORT INFORMATION
  Report Type: 
  Country: None (occurrence: None)
  Receive Date: 20091124
  Receipt Date: 20091120
  Transmission Date: 20100525
  Serious: No
  Sender: FDA-Public Use
  Company Number: US-B.I. PHARMACEUTICALS,INC./RIDGEFIELD-2009-BP-13568BP

PATIENT
  Sex: Male

DRUGS (5)
  1. SPIRIVA [Suspect]
     Indication: CHRONIC OBSTRUCTIVE PULMONARY DISEASE
     Dosage: 18 MCG
     Route: 055
     Dates: start: 20080101
  2. SPIRIVA [Suspect]
     Dosage: 18 MCG
     Route: 055
     Dates: start: 20040101, end: 20060101
  3. FEXOFENADINE [Concomitant]
     Indication: HYPERSENSITIVITY
  4. ALBUTEROL [Concomitant]
     Indication: ASTHMA
  5. PROVENTIL [Concomitant]
     Indication: ASTHMA

REACTIONS (2)
  - MUSCLE SPASMS [None]
  - VISION BLURRED [None]
